FAERS Safety Report 17032482 (Version 2)
Quarter: 2019Q4

REPORT INFORMATION
  Report Type: Report from Study
  Country: TR (occurrence: TR)
  Receive Date: 20191114
  Receipt Date: 20191125
  Transmission Date: 20200122
  Serious: Yes (Hospitalization)
  Sender: FDA-Public Use
  Company Number: TR-REGENERON PHARMACEUTICALS, INC.-2019-64926

PATIENT

DRUGS (13)
  1. BELOC ZOK [Concomitant]
     Active Substance: METOPROLOL SUCCINATE
     Indication: ARRHYTHMIA
     Dosage: 25 MG, QD
     Route: 048
     Dates: start: 2005
  2. ETKINIA [Concomitant]
     Active Substance: RASAGILINE MESYLATE
     Indication: PARKINSON^S DISEASE
     Dosage: 1 MG, QD
     Route: 048
     Dates: start: 2009
  3. SPIRIVA [Concomitant]
     Active Substance: TIOTROPIUM BROMIDE MONOHYDRATE
     Indication: CHRONIC OBSTRUCTIVE PULMONARY DISEASE
     Dosage: 18 ?G, QD
     Route: 055
     Dates: start: 2009
  4. CEMIPLIMAB [Suspect]
     Active Substance: CEMIPLIMAB
     Indication: NON-SMALL CELL LUNG CANCER STAGE IV
     Dosage: 350 MG, Q3W
     Route: 042
     Dates: start: 20190430
  5. ANORO ELLIPTA [Concomitant]
     Active Substance: UMECLIDINIUM BROMIDE\VILANTEROL TRIFENATATE
     Indication: CHRONIC OBSTRUCTIVE PULMONARY DISEASE
     Dosage: 62.5/25 MCG, QD
     Route: 055
     Dates: start: 2009
  6. PREDNOL                            /00049601/ [Concomitant]
     Active Substance: METHYLPREDNISOLONE
     Indication: COLITIS
     Dosage: 4 MG, BID
     Route: 048
     Dates: start: 20191003
  7. LOPERMID [Concomitant]
     Indication: COLITIS
     Dosage: 2 MG, TID
     Route: 048
     Dates: start: 20191021
  8. EFEXOR [Concomitant]
     Active Substance: VENLAFAXINE HYDROCHLORIDE
     Indication: ANXIETY
     Dosage: 75 MG, QD
     Route: 048
     Dates: start: 2009
  9. ASPIRIN. [Concomitant]
     Active Substance: ASPIRIN
     Indication: ARRHYTHMIA
     Dosage: 300 MG, QD
     Route: 048
     Dates: start: 2005
  10. DICETEL [Concomitant]
     Active Substance: PINAVERIUM BROMIDE
     Indication: COLITIS
     Dosage: 50 MG, BID
     Route: 048
     Dates: start: 20190905
  11. DOLOREX                            /00044201/ [Concomitant]
     Indication: BACK PAIN
     Dosage: 500 MG, PRN
     Route: 048
     Dates: start: 2019
  12. COLIDUR [Concomitant]
     Indication: COLITIS
     Dosage: 200 MG, Q4H
     Route: 048
     Dates: start: 20190905
  13. TRANKO BUSKAS [Concomitant]
     Active Substance: BUTYLSCOPOLAMINE BROMIDE\MEDAZEPAM
     Indication: COLITIS
     Dosage: UNK, BID
     Route: 048
     Dates: start: 20191021

REACTIONS (1)
  - Pneumonia [Recovered/Resolved]

NARRATIVE: CASE EVENT DATE: 20191105
